FAERS Safety Report 6237404-0 (Version None)
Quarter: 2009Q2

REPORT INFORMATION
  Report Type: 
  Country: None (occurrence: None)
  Receive Date: 20090619
  Receipt Date: 20090609
  Transmission Date: 20091009
  Serious: Yes (Hospitalization)
  Sender: FDA-Public Use
  Company Number: US-MYLANLABS-2009S1006217

PATIENT
  Age: 78 Year
  Sex: Female
  Weight: 68.04 kg

DRUGS (13)
  1. AMIODARONE HYDROCHLORIDE [Suspect]
     Indication: HEART RATE IRREGULAR
     Route: 048
     Dates: start: 20090501
  2. AMIODARONE HYDROCHLORIDE [Suspect]
     Indication: ATRIAL FIBRILLATION
     Route: 048
     Dates: start: 20090501
  3. AMIODARONE HYDROCHLORIDE [Suspect]
     Route: 048
  4. AMIODARONE HYDROCHLORIDE [Suspect]
     Route: 048
  5. AMIODARONE HYDROCHLORIDE [Suspect]
     Route: 048
  6. AMIODARONE HYDROCHLORIDE [Suspect]
     Route: 048
  7. METOPROLOL SUCCINATE [Suspect]
     Indication: HEART RATE IRREGULAR
     Route: 048
     Dates: start: 20090501
  8. METOPROLOL SUCCINATE [Suspect]
     Route: 048
  9. LISINOPRIL [Concomitant]
  10. FUROSEMIDE [Concomitant]
  11. COUMADIN [Concomitant]
  12. CRESTOR [Concomitant]
  13. ASPIRIN [Concomitant]

REACTIONS (4)
  - DISORIENTATION [None]
  - FATIGUE [None]
  - FEELING ABNORMAL [None]
  - SEDATION [None]
